FAERS Safety Report 24132620 (Version 2)
Quarter: 2024Q3

REPORT INFORMATION
  Report Type: Spontaneous
  Country: US (occurrence: US)
  Receive Date: 20240724
  Receipt Date: 20240820
  Transmission Date: 20241016
  Serious: Yes (Other)
  Sender: PFIZER
  Company Number: US-PFIZER INC-202400221964

PATIENT
  Age: 61 Year
  Sex: Female
  Weight: 63.5 kg

DRUGS (5)
  1. RUXIENCE [Suspect]
     Active Substance: RITUXIMAB-PVVR
     Indication: Rheumatoid arthritis
     Dosage: 1000 MG (Q 6 MONTHS)
     Route: 042
     Dates: start: 20240528, end: 20240724
  2. ZYRTEC [Concomitant]
     Active Substance: CETIRIZINE HYDROCHLORIDE
  3. BREO ELLIPTA [Concomitant]
     Active Substance: FLUTICASONE FUROATE\VILANTEROL TRIFENATATE
     Dosage: ONE PUFF DAILY
  4. ALBUTEROL [Concomitant]
     Active Substance: ALBUTEROL
     Dosage: 90 UG, AS NEEDED (CAN TAKE TWO PUFFS EVERY SIX HOURS AS NEEDED)
  5. AIRSUPRA [BUDESONIDE;SALBUTAMOL] [Concomitant]
     Dosage: 90 MICROGRAMS PER INHALATION WHICH IS ALSO TWO PUFFS SIX TIMES AS NEEDED

REACTIONS (2)
  - Pneumonia [Not Recovered/Not Resolved]
  - Rash [Recovering/Resolving]

NARRATIVE: CASE EVENT DATE: 20240528
